FAERS Safety Report 22922437 (Version 2)
Quarter: 2024Q3

REPORT INFORMATION
  Report Type: Spontaneous
  Country: US (occurrence: None)
  Receive Date: 20230908
  Receipt Date: 20240906
  Transmission Date: 20241017
  Serious: No
  Sender: DOMPE FARMACEUTICI
  Company Number: US-FARMAPROD-202302-0474

PATIENT
  Age: 72 Year
  Sex: Male

DRUGS (3)
  1. OXERVATE [Suspect]
     Active Substance: CENEGERMIN-BKBJ
     Indication: Neurotrophic keratopathy
     Route: 047
     Dates: start: 20230201, end: 20230329
  2. OXERVATE [Suspect]
     Active Substance: CENEGERMIN-BKBJ
     Route: 047
     Dates: start: 20231115
  3. OXERVATE [Suspect]
     Active Substance: CENEGERMIN-BKBJ

REACTIONS (9)
  - Vision blurred [Not Recovered/Not Resolved]
  - Cough [Not Recovered/Not Resolved]
  - Dyspnoea [Not Recovered/Not Resolved]
  - Oropharyngeal pain [Not Recovered/Not Resolved]
  - Eye pain [Recovering/Resolving]
  - Eye irritation [Unknown]
  - Swelling of eyelid [Unknown]
  - Swelling face [Unknown]
  - Periorbital pain [Recovering/Resolving]

NARRATIVE: CASE EVENT DATE: 20231118
